FAERS Safety Report 25384320 (Version 1)
Quarter: 2025Q2

REPORT INFORMATION
  Report Type: Spontaneous
  Country: IT (occurrence: IT)
  Receive Date: 20250602
  Receipt Date: 20250602
  Transmission Date: 20250716
  Serious: Yes (Other)
  Sender: MACLEODS
  Company Number: IT-MLMSERVICE-20250516-PI510036-00202-1

PATIENT
  Age: 15 Year
  Sex: Male

DRUGS (14)
  1. LINEZOLID [Suspect]
     Active Substance: LINEZOLID
     Indication: Staphylococcal infection
     Route: 065
  2. LINEZOLID [Suspect]
     Active Substance: LINEZOLID
     Indication: Septic shock
  3. LINEZOLID [Suspect]
     Active Substance: LINEZOLID
     Indication: Skin infection
  4. LINEZOLID [Suspect]
     Active Substance: LINEZOLID
     Indication: Staphylococcal bacteraemia
  5. CEFTAROLINE [Concomitant]
     Active Substance: CEFTAROLINE
     Route: 065
  6. CEFTAROLINE [Concomitant]
     Active Substance: CEFTAROLINE
     Indication: Septic shock
  7. CEFTAROLINE [Concomitant]
     Active Substance: CEFTAROLINE
     Indication: Skin infection
  8. CEFTAROLINE [Concomitant]
     Active Substance: CEFTAROLINE
  9. NOREPINEPHRINE [Concomitant]
     Active Substance: NOREPINEPHRINE
     Dosage: HIGH-DOSE, 0.67 MCG/KG/MIN
     Route: 065
  10. VASOPRESSIN [Concomitant]
     Active Substance: VASOPRESSIN
     Route: 065
  11. DAPTOMYCIN [Concomitant]
     Active Substance: DAPTOMYCIN
     Route: 065
  12. DAPTOMYCIN [Concomitant]
     Active Substance: DAPTOMYCIN
     Indication: Septic shock
  13. DAPTOMYCIN [Concomitant]
     Active Substance: DAPTOMYCIN
     Indication: Skin infection
  14. DAPTOMYCIN [Concomitant]
     Active Substance: DAPTOMYCIN

REACTIONS (1)
  - Thrombocytopenia [Unknown]
